FAERS Safety Report 9131936 (Version 1)
Quarter: 2013Q1

REPORT INFORMATION
  Report Type: Report from Study
  Country: US (occurrence: US)
  Receive Date: 20130301
  Receipt Date: 20130301
  Transmission Date: 20140127
  Serious: No
  Sender: FDA-Public Use
  Company Number: US-MYLANLABS-2012S1022630

PATIENT
  Age: 21 Year
  Sex: Male

DRUGS (1)
  1. AMNESTEEM CAPSULES [Suspect]
     Indication: ACNE
     Route: 048
     Dates: start: 201209, end: 201210

REACTIONS (3)
  - Epistaxis [Recovered/Resolved]
  - Dry skin [Recovered/Resolved]
  - Back pain [Recovered/Resolved]
